FAERS Safety Report 22232604 (Version 2)
Quarter: 2023Q2

REPORT INFORMATION
  Report Type: Spontaneous
  Country: US (occurrence: US)
  Receive Date: 20230420
  Receipt Date: 20230512
  Transmission Date: 20230722
  Serious: Yes (Other)
  Sender: FDA-Public Use
  Company Number: US-Hikma Pharmaceuticals USA Inc.-US-H14001-23-01242

PATIENT

DRUGS (3)
  1. LIDOCAINE [Suspect]
     Active Substance: LIDOCAINE
     Indication: Product used for unknown indication
     Dosage: GIVEN ALONG WITH THE CEFTRIAXONE AND DEXAMETHASONE
     Route: 065
     Dates: start: 20230406
  2. CEFTRIAXONE SODIUM [Suspect]
     Active Substance: CEFTRIAXONE SODIUM
     Indication: Product used for unknown indication
     Dosage: 1G FOR INJECTION, WITH LIDOCAINE, AND WITH DEXAMETHASONE
     Route: 065
     Dates: start: 20230406
  3. DEXAMETHASONE [Suspect]
     Active Substance: DEXAMETHASONE
     Indication: Product used for unknown indication
     Dosage: GIVEN ALONG WITH THE CEFTRIAXONE AND LIDOCAINE
     Route: 065
     Dates: start: 20230406

REACTIONS (2)
  - Respiratory distress [Unknown]
  - Seizure [Unknown]

NARRATIVE: CASE EVENT DATE: 20230406
